FAERS Safety Report 22324745 (Version 1)
Quarter: 2023Q2

REPORT INFORMATION
  Report Type: Spontaneous
  Country: US (occurrence: None)
  Receive Date: 20230514
  Receipt Date: 20230514
  Transmission Date: 20230721
  Serious: Yes (Other)
  Sender: FDA-Public Use
  Company Number: None

PATIENT
  Age: 75 Year
  Sex: Female

DRUGS (1)
  1. GEMTESA [Suspect]
     Active Substance: VIBEGRON
     Dosage: FREQUENCY : DAILY;?
     Route: 048
     Dates: end: 20230514

REACTIONS (6)
  - Arthralgia [None]
  - Arthralgia [None]
  - Gait disturbance [None]
  - Weight bearing difficulty [None]
  - Pain [None]
  - Pain [None]

NARRATIVE: CASE EVENT DATE: 20230504
